FAERS Safety Report 4999756-9 (Version None)
Quarter: 2006Q2

REPORT INFORMATION
  Report Type: 
  Country: None (occurrence: None)
  Receive Date: 20060511
  Receipt Date: 20060503
  Transmission Date: 20061013
  Serious: Yes (Other)
  Sender: FDA-Public Use
  Company Number: GB-GLAXOSMITHKLINE-B0422993A

PATIENT
  Age: 52 Year
  Sex: Female

DRUGS (2)
  1. NIQUITIN CQ [Suspect]
     Route: 062
     Dates: start: 20060316
  2. SALBUTAMOL [Concomitant]

REACTIONS (1)
  - CONTUSION [None]
